FAERS Safety Report 7704275-2 (Version None)
Quarter: 2011Q3

REPORT INFORMATION
  Report Type: 
  Country: None (occurrence: None)
  Receive Date: 20110823
  Receipt Date: 20110812
  Transmission Date: 20111222
  Serious: Yes (Other)
  Sender: FDA-Public Use
  Company Number: PHFR2011GB03513

PATIENT
  Sex: Male

DRUGS (4)
  1. VALPROATE SODIUM [Concomitant]
     Dosage: 50 MG, UNK
  2. CLOZAPINE [Suspect]
     Indication: SCHIZOPHRENIA
     Dates: start: 20070504
  3. CLOZAPINE [Suspect]
     Dosage: 300 MG
  4. CLOZAPINE [Suspect]
     Dosage: 500 MG
     Route: 048

REACTIONS (4)
  - PLATELET COUNT INCREASED [None]
  - PULMONARY EMBOLISM [None]
  - CARDIOLIPIN ANTIBODY POSITIVE [None]
  - ANTIPHOSPHOLIPID ANTIBODIES POSITIVE [None]
